FAERS Safety Report 8274123-3 (Version None)
Quarter: 2012Q2

REPORT INFORMATION
  Report Type: 
  Country: None (occurrence: None)
  Receive Date: 20120411
  Receipt Date: 20120328
  Transmission Date: 20120825
  Serious: Yes (Other)
  Sender: FDA-Public Use
  Company Number: US-CELGENEUS-163-21880-11120199

PATIENT
  Sex: Male
  Weight: 74.91 kg

DRUGS (14)
  1. ASPIRIN [Concomitant]
     Dosage: 325 MILLIGRAM
     Route: 065
     Dates: start: 20111101
  2. VITAMIN D [Concomitant]
     Route: 065
  3. ZOMETA [Concomitant]
     Route: 065
  4. REVLIMID [Suspect]
     Dosage: 25 MILLIGRAM
     Route: 048
     Dates: start: 20111116, end: 20111128
  5. BENADRYL [Concomitant]
     Route: 065
  6. HYDROCHLOROTHIAZIDE [Concomitant]
     Route: 065
  7. LISINOPRIL AND HYDROCHLOROTHIAZIDE [Concomitant]
     Dosage: 20/25MG
     Route: 065
  8. ASPIRIN [Concomitant]
     Route: 065
  9. OMEPRAZOLE [Concomitant]
     Dosage: 20 MILLIGRAM
     Route: 065
  10. LISINOPRIL [Concomitant]
     Route: 065
  11. OXYCODONE HCL [Concomitant]
     Route: 065
  12. VALACYCLOVIR [Concomitant]
     Route: 065
  13. PERCOCET [Concomitant]
     Indication: PAIN
     Dosage: 1-2 TABS
     Route: 048
  14. METOPROLOL TARTRATE [Concomitant]
     Dosage: 100 MILLIGRAM
     Route: 065

REACTIONS (3)
  - PAPILLOEDEMA [None]
  - CEREBRAL INFARCTION [None]
  - RETINAL INFARCTION [None]
